FAERS Safety Report 15423951 (Version 1)
Quarter: 2018Q3

REPORT INFORMATION
  Report Type: Spontaneous
  Country: DE (occurrence: DE)
  Receive Date: 20180925
  Receipt Date: 20180925
  Transmission Date: 20181010
  Serious: Yes (Death, Hospitalization, Other)
  Sender: FDA-Public Use
  Company Number: DE-BAUSCH-BL-2018-025765

PATIENT
  Age: 34 Year
  Sex: Male

DRUGS (9)
  1. ROMIPLOSTIM [Suspect]
     Active Substance: ROMIPLOSTIM
     Indication: PRODUCT USED FOR UNKNOWN INDICATION
     Route: 065
     Dates: start: 20160926, end: 20160926
  2. ROMIPLOSTIM [Suspect]
     Active Substance: ROMIPLOSTIM
     Route: 065
  3. PANTOPRAZOLE [Concomitant]
     Active Substance: PANTOPRAZOLE
     Indication: PRODUCT USED FOR UNKNOWN INDICATION
     Route: 065
  4. LEMTRADA [Suspect]
     Active Substance: ALEMTUZUMAB
     Indication: RELAPSING-REMITTING MULTIPLE SCLEROSIS
     Route: 041
     Dates: start: 201502, end: 201502
  5. LEMTRADA [Suspect]
     Active Substance: ALEMTUZUMAB
     Route: 041
     Dates: start: 20160308, end: 20160310
  6. PARACETAMOL [Concomitant]
     Active Substance: ACETAMINOPHEN
     Indication: PRODUCT USED FOR UNKNOWN INDICATION
     Route: 065
  7. MOCLOBEMIDE [Concomitant]
     Active Substance: MOCLOBEMIDE
     Indication: PRODUCT USED FOR UNKNOWN INDICATION
     Route: 065
  8. ACICLOVIR [Suspect]
     Active Substance: ACYCLOVIR
     Indication: PRODUCT USED FOR UNKNOWN INDICATION
     Route: 065
  9. TOPIRAMATE. [Concomitant]
     Active Substance: TOPIRAMATE
     Indication: PRODUCT USED FOR UNKNOWN INDICATION
     Route: 065

REACTIONS (23)
  - Melaena [Fatal]
  - Cerebellar haemorrhage [Fatal]
  - Hallucination [Unknown]
  - Herpes zoster [Unknown]
  - Bone pain [Unknown]
  - Platelet count decreased [Fatal]
  - Haematuria [Fatal]
  - Subarachnoid haemorrhage [Unknown]
  - Abdominal pain [Fatal]
  - Petechiae [Fatal]
  - Epistaxis [Fatal]
  - Immune thrombocytopenic purpura [Fatal]
  - Haemorrhage [Unknown]
  - Headache [Unknown]
  - Gastrointestinal disorder [Unknown]
  - Anti-platelet antibody positive [Fatal]
  - Migraine [Unknown]
  - Fatigue [Unknown]
  - Haemorrhagic diathesis [Fatal]
  - Brain stem haemorrhage [Fatal]
  - Haematoma [Fatal]
  - Pyrexia [Unknown]
  - Rash [Unknown]

NARRATIVE: CASE EVENT DATE: 2016
